FAERS Safety Report 12466150 (Version 2)
Quarter: 2016Q2

REPORT INFORMATION
  Report Type: Other
  Country: IT (occurrence: IT)
  Receive Date: 20160614
  Receipt Date: 20160620
  Transmission Date: 20160815
  Serious: Yes (Hospitalization)
  Sender: FDA-Public Use
  Company Number: IT-VALIDUS PHARMACEUTICALS LLC-IT-2016VAL002092

PATIENT

DRUGS (3)
  1. CALCIUM CARBONATE. [Suspect]
     Active Substance: CALCIUM CARBONATE
     Indication: HYPOPARATHYROIDISM
     Dosage: UNK
  2. DIBASE [Suspect]
     Active Substance: CHOLECALCIFEROL
     Indication: HYPOPARATHYROIDISM
     Dosage: 100000 IU, 1 IN 1 M
  3. CALCITRIOL. [Suspect]
     Active Substance: CALCITRIOL
     Indication: HYPOPARATHYROIDISM
     Dosage: UNK

REACTIONS (2)
  - Acute kidney injury [Recovering/Resolving]
  - Hypercalcaemia [Recovering/Resolving]

NARRATIVE: CASE EVENT DATE: 20160209
